FAERS Safety Report 6648511-2 (Version None)
Quarter: 2010Q1

REPORT INFORMATION
  Report Type: 
  Country: None (occurrence: None)
  Receive Date: 20100324
  Receipt Date: 20100310
  Transmission Date: 20100710
  Serious: Yes (Death)
  Sender: FDA-Public Use
  Company Number: NL-BAYER-201019140GPV

PATIENT
  Age: 52 Year
  Sex: Male

DRUGS (1)
  1. DACARBAZINE [Suspect]
     Indication: METASTATIC MALIGNANT MELANOMA
     Dosage: 800 MG/M2
     Route: 042

REACTIONS (1)
  - GASTROINTESTINAL PERFORATION [None]
